FAERS Safety Report 6592931-1 (Version None)
Quarter: 2010Q1

REPORT INFORMATION
  Report Type: 
  Country: None (occurrence: None)
  Receive Date: 20100212
  Receipt Date: 20100126
  Transmission Date: 20100710
  Serious: Yes (Hospitalization)
  Sender: FDA-Public Use
  Company Number: WAES 1001BEL00007

PATIENT
  Age: 76 Year
  Sex: Male

DRUGS (11)
  1. CAP BLINDED THERAPY [Suspect]
     Indication: PLEURAL MESOTHELIOMA MALIGNANT
     Dosage: PO
     Route: 048
     Dates: start: 20100120, end: 20100122
  2. ASPIRIN [Concomitant]
  3. ATORVASTATIN CALCIUM [Concomitant]
  4. BETAHISTINE [Concomitant]
  5. BISOPROLOL [Concomitant]
  6. FOLIC ACID [Concomitant]
  7. METHOTREXATE [Concomitant]
  8. METHYLPREDNISOLONE [Concomitant]
  9. OMEPRAZOLE [Concomitant]
  10. PIROXICAM [Concomitant]
  11. TRAMADOL HCL [Concomitant]

REACTIONS (3)
  - DISORIENTATION [None]
  - PYREXIA [None]
  - URINARY RETENTION [None]
